FAERS Safety Report 16184873 (Version 1)
Quarter: 2019Q2

REPORT INFORMATION
  Report Type: Spontaneous
  Country: US (occurrence: US)
  Receive Date: 20190411
  Receipt Date: 20190411
  Transmission Date: 20190711
  Serious: No
  Sender: FDA-Public Use
  Company Number: US-PFIZER INC-2019151953

PATIENT
  Age: 39 Year
  Sex: Female

DRUGS (1)
  1. EUCRISA [Suspect]
     Active Substance: CRISABOROLE
     Dosage: UNK, APPLY TO AFFECTED AREAS TWICE A DAY (AS NEEDED) ON FACE
     Route: 061
     Dates: start: 201902, end: 2019

REACTIONS (1)
  - Drug ineffective [Unknown]
